FAERS Safety Report 5252457-4 (Version None)
Quarter: 2007Q1

REPORT INFORMATION
  Report Type: 
  Country: None (occurrence: None)
  Receive Date: 20070301
  Receipt Date: 20070222
  Transmission Date: 20070707
  Serious: Yes (Death)
  Sender: FDA-Public Use
  Company Number: US-JNJFOC-20070205349

PATIENT
  Sex: Female

DRUGS (20)
  1. INFLIXIMAB [Suspect]
     Indication: RHEUMATOID ARTHRITIS
     Route: 042
  2. ATENOLOL [Concomitant]
  3. CALCIUM+D [Concomitant]
  4. COZAAR [Concomitant]
  5. CYTOTEC [Concomitant]
  6. DIGALOID [Concomitant]
  7. ENTERIC ASPIRIN [Concomitant]
  8. FOLIC ACID [Concomitant]
  9. FOSAMAX [Concomitant]
  10. K-TAB [Concomitant]
  11. VITAMIN CAP [Concomitant]
  12. PREDNISONE [Concomitant]
  13. TRIAMTERENE AND HYDROCHLOROTHIAZIDE [Concomitant]
  14. WARFARIN SODIUM [Concomitant]
  15. LEXAPRO [Concomitant]
  16. PRAVACHOL [Concomitant]
  17. HUMIBID [Concomitant]
  18. VICODIN [Concomitant]
  19. TYLENOL [Concomitant]
  20. TUMS [Concomitant]

REACTIONS (1)
  - RESPIRATORY FAILURE [None]
